APPROVED DRUG PRODUCT: DEXTROSE 5% IN PLASTIC CONTAINER
Active Ingredient: DEXTROSE
Strength: 5GM/100ML
Dosage Form/Route: INJECTABLE;INJECTION
Application: N019479 | Product #001 | TE Code: AP
Applicant: HOSPIRA INC
Approved: Sep 17, 1985 | RLD: Yes | RS: Yes | Type: RX